FAERS Safety Report 8429315-7 (Version None)
Quarter: 2012Q2

REPORT INFORMATION
  Report Type: 
  Country: None (occurrence: None)
  Receive Date: 20120612
  Receipt Date: 20120608
  Transmission Date: 20120825
  Serious: Yes (Hospitalization)
  Sender: FDA-Public Use
  Company Number: PHHO2012SE008083

PATIENT
  Sex: Female
  Weight: 59 kg

DRUGS (1)
  1. TASIGNA [Suspect]
     Indication: CHRONIC MYELOID LEUKAEMIA
     Dosage: UNK

REACTIONS (2)
  - CAROTID ARTERY STENOSIS [None]
  - TRANSIENT ISCHAEMIC ATTACK [None]
